FAERS Safety Report 23302562 (Version 1)
Quarter: 2023Q4

REPORT INFORMATION
  Report Type: Spontaneous
  Country: US (occurrence: US)
  Receive Date: 20231215
  Receipt Date: 20231215
  Transmission Date: 20240110
  Serious: No
  Sender: FDA-Public Use
  Company Number: US-PFIZER INC-202300441539

PATIENT
  Sex: Female

DRUGS (1)
  1. METHOTREXATE SODIUM [Suspect]
     Active Substance: METHOTREXATE SODIUM
     Dosage: UNK
     Dates: start: 2023, end: 202309

REACTIONS (3)
  - Dyspepsia [Unknown]
  - Taste disorder [Unknown]
  - Tremor [Unknown]

NARRATIVE: CASE EVENT DATE: 20230101
